FAERS Safety Report 14612787 (Version 1)
Quarter: 2018Q1

REPORT INFORMATION
  Report Type: Report from Study
  Country: AU (occurrence: AU)
  Receive Date: 20180308
  Receipt Date: 20180308
  Transmission Date: 20180509
  Serious: Yes (Other)
  Sender: FDA-Public Use
  Company Number: AU-REGENERON PHARMACEUTICALS, INC.-2018-16519

PATIENT

DRUGS (2)
  1. EYLEA [Suspect]
     Active Substance: AFLIBERCEPT
     Indication: NEOVASCULAR AGE-RELATED MACULAR DEGENERATION
     Dosage: EVERY 8 TO 10 WEEKS
     Route: 031
     Dates: start: 20160223
  2. EYLEA [Suspect]
     Active Substance: AFLIBERCEPT
     Dosage: EVERY4 WEEKS
     Route: 031

REACTIONS (1)
  - Eye haemorrhage [Unknown]
